FAERS Safety Report 4594883-2 (Version None)
Quarter: 2005Q1

REPORT INFORMATION
  Report Type: 
  Country: None (occurrence: None)
  Receive Date: 20050223
  Receipt Date: 20050211
  Transmission Date: 20050727
  Serious: Yes (Other)
  Sender: FDA-Public Use
  Company Number: 2005029641

PATIENT
  Age: 75 Year
  Sex: Female

DRUGS (4)
  1. LIPITOR [Suspect]
     Indication: HYPERCHOLESTEROLAEMIA
     Dosage: (DAILY),
  2. CITALOPRAM HYDROBROMIDE [Concomitant]
  3. BUDESONIDE (BUDESONIDE) [Concomitant]
  4. LEVOTHYROXINE SODIUM [Concomitant]

REACTIONS (5)
  - ASTHMA [None]
  - CONTUSION [None]
  - DEPRESSION [None]
  - LYMPHOMA [None]
  - THYROID DISORDER [None]
